FAERS Safety Report 13656662 (Version 1)
Quarter: 2017Q2

REPORT INFORMATION
  Report Type: Other
  Country: ES (occurrence: ES)
  Receive Date: 20170615
  Receipt Date: 20170615
  Transmission Date: 20170830
  Serious: Yes (Hospitalization, Other)
  Sender: FDA-Public Use
  Company Number: ES-ASTELLAS-2017US023112

PATIENT
  Age: 46 Year
  Sex: Male

DRUGS (2)
  1. ADVAGRAF [Suspect]
     Active Substance: TACROLIMUS
     Indication: LIVER TRANSPLANT
     Dosage: UNK UNK, UNKNOWN FREQ.
     Route: 048
     Dates: start: 2015
  2. MYCOPHENOLATE MOFETIL. [Concomitant]
     Active Substance: MYCOPHENOLATE MOFETIL
     Indication: LIVER TRANSPLANT
     Dosage: UNK UNK, UNKNOWN FREQ.
     Route: 048
     Dates: start: 2015

REACTIONS (16)
  - Immunosuppressant drug level increased [Recovered/Resolved]
  - Nausea [Recovered/Resolved]
  - Drug interaction [Unknown]
  - Overdose [Unknown]
  - Drug monitoring procedure not performed [Recovered/Resolved]
  - Malaise [Unknown]
  - Hepatic cirrhosis [Unknown]
  - Gastroenteritis [Recovered/Resolved]
  - Immunosuppressant drug level decreased [Unknown]
  - Diarrhoea [Recovered/Resolved]
  - Toxicity to various agents [Unknown]
  - Acute kidney injury [Recovered/Resolved]
  - Headache [Unknown]
  - Vomiting [Recovered/Resolved]
  - Chronic kidney disease [Unknown]
  - Abdominal pain [Unknown]

NARRATIVE: CASE EVENT DATE: 20161111
